FAERS Safety Report 20037108 (Version 1)
Quarter: 2021Q4

REPORT INFORMATION
  Report Type: Spontaneous
  Country: CA (occurrence: CA)
  Receive Date: 20211105
  Receipt Date: 20211105
  Transmission Date: 20220303
  Serious: Yes (Life-Threatening, Hospitalization, Other)
  Sender: FDA-Public Use
  Company Number: CA-TEVA-2021-CA-1971774

PATIENT
  Age: 36 Year
  Sex: Female

DRUGS (26)
  1. DULOXETINE [Interacting]
     Active Substance: DULOXETINE
     Indication: Pain
     Route: 065
  2. ACETAMINOPHEN [Interacting]
     Active Substance: ACETAMINOPHEN
     Indication: Pain
     Route: 065
  3. ACETAMINOPHEN [Interacting]
     Active Substance: ACETAMINOPHEN
     Indication: Analgesic therapy
     Route: 065
  4. ACETAMINOPHEN [Interacting]
     Active Substance: ACETAMINOPHEN
     Indication: Musculoskeletal pain
     Route: 048
  5. ACETAMINOPHEN [Interacting]
     Active Substance: ACETAMINOPHEN
     Indication: Back pain
     Route: 048
  6. AMITRIPTYLINE [Interacting]
     Active Substance: AMITRIPTYLINE
     Indication: Pain
     Route: 065
  7. AMITRIPTYLINE [Interacting]
     Active Substance: AMITRIPTYLINE
     Indication: Analgesic therapy
  8. PREGABALIN [Interacting]
     Active Substance: PREGABALIN
     Indication: Pain
     Route: 065
  9. PREGABALIN [Interacting]
     Active Substance: PREGABALIN
     Indication: Analgesic therapy
  10. PREGABALIN [Interacting]
     Active Substance: PREGABALIN
     Indication: Musculoskeletal pain
  11. DULOXETINE HYDROCHLORIDE [Interacting]
     Active Substance: DULOXETINE HYDROCHLORIDE
     Indication: Pain
     Route: 065
  12. DULOXETINE HYDROCHLORIDE [Interacting]
     Active Substance: DULOXETINE HYDROCHLORIDE
     Indication: Analgesic therapy
  13. TRAMADOL HYDROCHLORIDE [Suspect]
     Active Substance: TRAMADOL HYDROCHLORIDE
     Indication: Pain
     Route: 065
  14. TRAMADOL HYDROCHLORIDE [Suspect]
     Active Substance: TRAMADOL HYDROCHLORIDE
     Indication: Analgesic therapy
     Route: 048
  15. TRAMADOL HYDROCHLORIDE [Suspect]
     Active Substance: TRAMADOL HYDROCHLORIDE
     Indication: Musculoskeletal pain
     Route: 048
  16. TRAMADOL HYDROCHLORIDE [Suspect]
     Active Substance: TRAMADOL HYDROCHLORIDE
     Indication: Back pain
  17. TRIAZOLAM [Suspect]
     Active Substance: TRIAZOLAM
     Indication: Pain
     Route: 065
  18. TRIAZOLAM [Suspect]
     Active Substance: TRIAZOLAM
     Indication: Analgesic therapy
     Route: 065
  19. TRIAZOLAM [Suspect]
     Active Substance: TRIAZOLAM
     Indication: Musculoskeletal pain
     Route: 048
  20. TRIAZOLAM [Suspect]
     Active Substance: TRIAZOLAM
     Indication: Back pain
     Route: 048
  21. AMITRIPTYLINE [Suspect]
     Active Substance: AMITRIPTYLINE
     Indication: Pain
     Route: 065
  22. AMITRIPTYLINE HYDROCHLORIDE\PERPHENAZINE [Suspect]
     Active Substance: AMITRIPTYLINE HYDROCHLORIDE\PERPHENAZINE
     Indication: Musculoskeletal pain
     Route: 065
  23. AMITRIPTYLINE HYDROCHLORIDE\PERPHENAZINE [Suspect]
     Active Substance: AMITRIPTYLINE HYDROCHLORIDE\PERPHENAZINE
     Indication: Back pain
     Route: 065
  24. DULOXETINE [Suspect]
     Active Substance: DULOXETINE
     Indication: Musculoskeletal pain
     Route: 048
  25. DULOXETINE [Suspect]
     Active Substance: DULOXETINE
     Indication: Back pain
     Route: 048
  26. ACETAMINOPHEN [Concomitant]
     Active Substance: ACETAMINOPHEN

REACTIONS (11)
  - Agitation [Recovered/Resolved]
  - Dyskinesia [Recovered/Resolved]
  - Dyspnoea [Recovered/Resolved]
  - Hyperhidrosis [Recovered/Resolved]
  - Muscle rigidity [Recovered/Resolved]
  - Myoclonus [Recovered/Resolved]
  - Nervousness [Recovered/Resolved]
  - Serotonin syndrome [Recovered/Resolved]
  - Tachycardia [Recovered/Resolved]
  - Tremor [Recovered/Resolved]
  - Labelled drug-drug interaction issue [Recovered/Resolved]
